FAERS Safety Report 4823918-4 (Version None)
Quarter: 2005Q4

REPORT INFORMATION
  Report Type: 
  Country: None (occurrence: None)
  Receive Date: 20051107
  Receipt Date: 20051028
  Transmission Date: 20060501
  Serious: Yes (Death)
  Sender: FDA-Public Use
  Company Number: 2005131966

PATIENT
  Sex: Male

DRUGS (2)
  1. LIPITOR [Suspect]
     Indication: ILL-DEFINED DISORDER
     Dates: end: 20050101
  2. ARICEPT [Suspect]
     Indication: ILL-DEFINED DISORDER

REACTIONS (2)
  - METASTASES TO BONE [None]
  - METASTASIS [None]
